FAERS Safety Report 11864286 (Version 2)
Quarter: 2016Q3

REPORT INFORMATION
  Report Type: Spontaneous
  Country: BR (occurrence: BR)
  Receive Date: 20151223
  Receipt Date: 20160830
  Transmission Date: 20161109
  Serious: Yes (Hospitalization, Other)
  Sender: FDA-Public Use
  Company Number: BR-JNJFOC-20151216330

PATIENT
  Age: 64 Year
  Sex: Female
  Weight: 83 kg

DRUGS (1)
  1. SIMPONI [Suspect]
     Active Substance: GOLIMUMAB
     Indication: RHEUMATOID ARTHRITIS
     Route: 058
     Dates: start: 20141118

REACTIONS (6)
  - Limb crushing injury [Unknown]
  - Accident [Recovered/Resolved with Sequelae]
  - Pain [Not Recovered/Not Resolved]
  - Injury [Recovering/Resolving]
  - Gait disturbance [Unknown]
  - Hepatic failure [Not Recovered/Not Resolved]

NARRATIVE: CASE EVENT DATE: 20150622
